FAERS Safety Report 5761274-8 (Version None)
Quarter: 2008Q2

REPORT INFORMATION
  Report Type: 
  Country: None (occurrence: None)
  Receive Date: 20080606
  Receipt Date: 20080604
  Transmission Date: 20081010
  Serious: Yes (Death)
  Sender: FDA-Public Use
  Company Number: MX-ABBOTT-08P-107-0455188-00

PATIENT
  Sex: Male

DRUGS (1)
  1. KALETRA [Suspect]
     Indication: HIV INFECTION
     Dosage: 800/200MG DAILY, 400/100 MG TWICE DAILY
     Dates: start: 20060902

REACTIONS (1)
  - HYPOVOLAEMIC SHOCK [None]
